FAERS Safety Report 16698097 (Version 1)
Quarter: 2019Q3

REPORT INFORMATION
  Report Type: Spontaneous
  Country: US (occurrence: US)
  Receive Date: 20190628
  Receipt Date: 20190628
  Transmission Date: 20191004
  Serious: Yes (Other)
  Sender: FDA-Public Use
  Company Number: None

PATIENT
  Age: 81 Year
  Sex: Female
  Weight: 65.77 kg

DRUGS (1)
  1. REPATHA [Suspect]
     Active Substance: EVOLOCUMAB
     Indication: BLOOD CHOLESTEROL INCREASED
     Dosage: ?          OTHER FREQUENCY:2WEEKS ;?
     Dates: start: 20190215, end: 20190614

REACTIONS (3)
  - Arthralgia [None]
  - Mobility decreased [None]
  - Gait disturbance [None]

NARRATIVE: CASE EVENT DATE: 20190608
